FAERS Safety Report 9165073 (Version 2)
Quarter: 2013Q2

REPORT INFORMATION
  Report Type: Spontaneous
  Country: FR (occurrence: FR)
  Receive Date: 20130315
  Receipt Date: 20130523
  Transmission Date: 20140414
  Serious: Yes (Death, Hospitalization, Other)
  Sender: FDA-Public Use
  Company Number: FR-B.I. PHARMACEUTICALS,INC./RIDGEFIELD-2013-FF-00728FF

PATIENT
  Age: 87 Year
  Sex: Female
  Weight: 46 kg

DRUGS (2)
  1. PRADAXA [Suspect]
     Indication: ATRIAL FIBRILLATION
     Dosage: 220 MG
     Route: 048
     Dates: start: 20130301, end: 20130307
  2. KARDEGIC [Suspect]
     Dosage: 75 MG
     Route: 048
     Dates: start: 201006, end: 20130307

REACTIONS (2)
  - Haemorrhage intracranial [Fatal]
  - Creatinine renal clearance decreased [Unknown]
